FAERS Safety Report 4894899-2 (Version None)
Quarter: 2006Q1

REPORT INFORMATION
  Report Type: 
  Country: None (occurrence: None)
  Receive Date: 20060130
  Receipt Date: 20050208
  Transmission Date: 20060701
  Serious: No
  Sender: FDA-Public Use
  Company Number: US-BRISTOL-MYERS SQUIBB COMPANY-12854188

PATIENT
  Age: 77 Year
  Sex: Male
  Weight: 91 kg

DRUGS (9)
  1. GLUCOPHAGE [Suspect]
     Dosage: VARYING DOSAGES FOR OVER 5 YEARS
     Dates: end: 20050208
  2. TOPROL [Concomitant]
  3. ALTACE [Concomitant]
  4. TRICOR [Concomitant]
  5. PLAVIX [Concomitant]
  6. IMDUR [Concomitant]
  7. PLETAL [Concomitant]
  8. NORVASC [Concomitant]
  9. HYDROCHLOROTHIAZIDE [Concomitant]

REACTIONS (3)
  - BLOOD CREATINE INCREASED [None]
  - BLOOD UREA INCREASED [None]
  - BLOOD UREA NITROGEN/CREATININE RATIO INCREASED [None]
